FAERS Safety Report 8421823-8 (Version None)
Quarter: 2012Q2

REPORT INFORMATION
  Report Type: 
  Country: None (occurrence: None)
  Receive Date: 20120608
  Receipt Date: 20120601
  Transmission Date: 20120825
  Serious: Yes (Other)
  Sender: FDA-Public Use
  Company Number: US-B.I. PHARMACEUTICALS,INC./RIDGEFIELD-2011-BP-08718BP

PATIENT
  Sex: Female

DRUGS (1)
  1. PRADAXA [Suspect]
     Indication: ATRIAL FIBRILLATION
     Dosage: 300 MG
     Route: 048
     Dates: start: 20110311

REACTIONS (7)
  - RECTAL HAEMORRHAGE [None]
  - BACK PAIN [None]
  - CHEST PAIN [None]
  - ABDOMINAL PAIN UPPER [None]
  - PAIN [None]
  - HAEMORRHAGE [None]
  - BREAST PAIN [None]
